FAERS Safety Report 23061956 (Version 1)
Quarter: 2023Q4

REPORT INFORMATION
  Report Type: Spontaneous
  Country: US (occurrence: US)
  Receive Date: 20231013
  Receipt Date: 20231013
  Transmission Date: 20240110
  Serious: Yes (Other)
  Sender: FDA-Public Use
  Company Number: US-MLMSERVICE-20230928-4570842-1

PATIENT

DRUGS (1)
  1. GABAPENTIN [Suspect]
     Active Substance: GABAPENTIN
     Indication: Central pain syndrome
     Dosage: UNK (HIGH DOSE)
     Route: 065
     Dates: start: 2015, end: 2015

REACTIONS (2)
  - Hallucination, visual [Unknown]
  - Vertigo [Unknown]

NARRATIVE: CASE EVENT DATE: 20150101
